FAERS Safety Report 7985966-5 (Version None)
Quarter: 2011Q4

REPORT INFORMATION
  Report Type: 
  Country: None (occurrence: None)
  Receive Date: 20111007
  Receipt Date: 20110826
  Transmission Date: 20120403
  Serious: No
  Sender: FDA-Public Use
  Company Number: 2011HGS-002523

PATIENT
  Age: 50 Year
  Sex: Female
  Weight: 88.905 kg

DRUGS (13)
  1. PERCOCET (OXYCOCET) (PARACETAMOL, OXYCODONE HYDROCHLORIDE) [Concomitant]
  2. VICODIN (VICODIN) (PARACETAMOL, HYDROCODONE BITARTRATE) [Concomitant]
  3. LEVOTHYROXINE SODIUM [Concomitant]
  4. BENLYSTA [Suspect]
     Indication: SYSTEMIC LUPUS ERYTHEMATOSUS
     Dosage: 1 IN 28 D, INTRAVENOUS DRIP
     Route: 041
     Dates: start: 20110506
  5. IMURAN [Concomitant]
  6. PLAQUENIL (HYDROXYCHLOROQUINE SULFATE) (HYDROXYCHLOROQUINE SULFATE) [Concomitant]
  7. PREMARIN (ESTROGENS CONJUGATED) (ESTROGENS CONJUGATED) [Concomitant]
  8. KLONOPIN [Concomitant]
  9. NEXIUM [Concomitant]
  10. TEGRETOL [Concomitant]
  11. NEURONTIN [Concomitant]
  12. RESTASIS (CICLOSPORIN) (CICLOSPORIN) [Concomitant]
  13. ADVAIR (SERETIDE MITE) (FLUTICASONE PROPIONATE, SALMETEROL XINAFOATE) [Concomitant]

REACTIONS (1)
  - ASTHMA [None]
